FAERS Safety Report 6078955-1 (Version None)
Quarter: 2009Q1

REPORT INFORMATION
  Report Type: 
  Country: None (occurrence: None)
  Receive Date: 20090216
  Receipt Date: 20090202
  Transmission Date: 20090719
  Serious: Yes (Other)
  Sender: FDA-Public Use
  Company Number: GR-ELI_LILLY_AND_COMPANY-GR200902000302

PATIENT
  Age: 59 Year
  Sex: Female
  Weight: 72 kg

DRUGS (2)
  1. EVISTA [Suspect]
     Indication: OSTEOPOROSIS
     Dosage: 60 MG, DAILY (1/D)
     Route: 048
     Dates: start: 20061101, end: 20081201
  2. NATECAL D [Concomitant]
     Indication: OSTEOPOROSIS
     Dosage: 600 MG, DAILY (1/D)
     Route: 048
     Dates: start: 20061101, end: 20081201

REACTIONS (1)
  - VEIN PAIN [None]
